FAERS Safety Report 6901031-X (Version None)
Quarter: 2010Q3

REPORT INFORMATION
  Report Type: 
  Country: None (occurrence: None)
  Receive Date: 20100803
  Receipt Date: 20100721
  Transmission Date: 20110219
  Serious: Yes (Hospitalization, Other)
  Sender: FDA-Public Use
  Company Number: PHFR2010GB01066

PATIENT
  Sex: Male
  Weight: 89.4 kg

DRUGS (8)
  1. ZOLEDRONIC ACID [Suspect]
     Indication: METASTASES TO BONE
     Dosage: 2 CYCLES OF 4MG EACH TIME
     Route: 042
     Dates: start: 20090420, end: 20090518
  2. SUTENT [Suspect]
     Indication: RENAL CELL CARCINOMA
     Dosage: 37.5 MG, QD
     Route: 048
     Dates: start: 20091207
  3. SUTENT [Suspect]
     Dosage: 25 MG
     Route: 048
     Dates: start: 20060701, end: 20100202
  4. BENDROFLUAZIDE [Concomitant]
     Dosage: 4MG/DAY
     Route: 048
  5. CODEINE [Concomitant]
  6. DEXAMETHASONE [Concomitant]
     Dosage: 1MG/DAY
     Route: 048
  7. ACETAMINOPHEN [Concomitant]
  8. LEVOTHYROXINE SODIUM [Concomitant]
     Indication: HYPOTHYROIDISM

REACTIONS (13)
  - BONE DISORDER [None]
  - BONE LESION [None]
  - BONE SWELLING [None]
  - DEHYDRATION [None]
  - DIARRHOEA [None]
  - ERYTHEMA [None]
  - LYMPH NODE PAIN [None]
  - LYMPHADENOPATHY [None]
  - MOUTH ULCERATION [None]
  - ONCOLOGIC COMPLICATION [None]
  - OSTEONECROSIS OF JAW [None]
  - RENAL IMPAIRMENT [None]
  - TOOTH EXTRACTION [None]
